FAERS Safety Report 8275749-3 (Version None)
Quarter: 2012Q2

REPORT INFORMATION
  Report Type: 
  Country: None (occurrence: None)
  Receive Date: 20120410
  Receipt Date: 20120410
  Transmission Date: 20120825
  Serious: Yes (Life-Threatening, Hospitalization)
  Sender: FDA-Public Use
  Company Number: None

PATIENT
  Age: 74 Year
  Sex: Male
  Weight: 87.3 kg

DRUGS (1)
  1. LITHIUM CARBONATE [Suspect]
     Indication: SCHIZOAFFECTIVE DISORDER
     Dosage: MG PO
     Route: 048
     Dates: start: 20100402, end: 20110509

REACTIONS (5)
  - MENTAL STATUS CHANGES [None]
  - VIITH NERVE PARALYSIS [None]
  - DYSARTHRIA [None]
  - DROOLING [None]
  - HEMIPARESIS [None]
